FAERS Safety Report 17860999 (Version 1)
Quarter: 2020Q2

REPORT INFORMATION
  Report Type: Spontaneous
  Country: US (occurrence: US)
  Receive Date: 20200604
  Receipt Date: 20200604
  Transmission Date: 20200714
  Serious: Yes (Death)
  Sender: FDA-Public Use
  Company Number: None

PATIENT
  Age: 49 Year
  Sex: Female
  Weight: 115 kg

DRUGS (1)
  1. REMDESIVIR UNDER EMERGENCY USE AUTHORIZATION [Suspect]
     Active Substance: REMDESIVIR
     Indication: COVID-19
     Route: 043
     Dates: start: 20200511, end: 20200520

REACTIONS (3)
  - Renal replacement therapy [None]
  - Antibiotic therapy [None]
  - Acute respiratory distress syndrome [None]

NARRATIVE: CASE EVENT DATE: 20200602
